FAERS Safety Report 25080966 (Version 1)
Quarter: 2025Q1

REPORT INFORMATION
  Report Type: Report from Study
  Country: US (occurrence: US)
  Receive Date: 20250315
  Receipt Date: 20250315
  Transmission Date: 20250409
  Serious: Yes (Other)
  Sender: NOVARTIS
  Company Number: US-002147023-NVSC2025US042596

PATIENT
  Sex: Female

DRUGS (1)
  1. KISQALI [Suspect]
     Active Substance: RIBOCICLIB
     Indication: Product used for unknown indication
     Route: 065

REACTIONS (8)
  - Haematochezia [Unknown]
  - Dehydration [Unknown]
  - Arthralgia [Unknown]
  - Memory impairment [Unknown]
  - Alopecia [Unknown]
  - Constipation [Unknown]
  - Abdominal pain [Unknown]
  - Haemorrhoids [Unknown]
